FAERS Safety Report 5097563-2 (Version None)
Quarter: 2006Q3

REPORT INFORMATION
  Report Type: 
  Country: None (occurrence: None)
  Receive Date: 20060901
  Receipt Date: 20060823
  Transmission Date: 20061208
  Serious: Yes (Disabling)
  Sender: FDA-Public Use
  Company Number: 2006100214

PATIENT
  Age: 72 Year
  Sex: Female

DRUGS (1)
  1. AROMASIN [Suspect]
     Indication: BREAST CANCER
     Dosage: 25 (25 MG, DAILY), ORAL
     Route: 048
     Dates: start: 20020725

REACTIONS (4)
  - ARTERIOSCLEROSIS [None]
  - BLOOD GLUCOSE INCREASED [None]
  - CEREBRAL INFARCTION [None]
  - HIGH DENSITY LIPOPROTEIN INCREASED [None]
